FAERS Safety Report 9112511 (Version 1)
Quarter: 2013Q1

REPORT INFORMATION
  Report Type: Spontaneous
  Country: US (occurrence: US)
  Receive Date: 20130211
  Receipt Date: 20130211
  Transmission Date: 20140127
  Serious: Yes (Other)
  Sender: FDA-Public Use
  Company Number: US-TARO-2013P1001771

PATIENT
  Age: 43 Year
  Sex: Male

DRUGS (12)
  1. PHENYTOIN [Suspect]
     Route: 048
     Dates: start: 201212
  2. GABAPENTIN [Concomitant]
  3. VALIUM [Concomitant]
  4. TIZANIDINE [Concomitant]
  5. ANDRODERM PATCH [Concomitant]
  6. BUSPAR [Concomitant]
  7. DANTRIUM [Concomitant]
  8. ATIVAN [Concomitant]
  9. ATIVAN [Concomitant]
  10. SEROQUEL [Concomitant]
  11. AMANTADINE [Concomitant]
  12. MIRALAX [Concomitant]

REACTIONS (3)
  - Drug effect decreased [Not Recovered/Not Resolved]
  - Convulsion [Recovered/Resolved]
  - Drug level decreased [Not Recovered/Not Resolved]
